FAERS Safety Report 5827459-7 (Version None)
Quarter: 2008Q2

REPORT INFORMATION
  Report Type: 
  Country: None (occurrence: None)
  Receive Date: 20080601
  Receipt Date: 20080208
  Transmission Date: 20081010
  Serious: No
  Sender: FDA-Public Use
  Company Number: US200802002454

PATIENT
  Age: 71 Year
  Sex: Male
  Weight: 140.1 kg

DRUGS (10)
  1. BYETTA [Suspect]
     Indication: TYPE 2 DIABETES MELLITUS
     Dosage: 5 UG, 2/D, SUBCUTANEOUS : 10 UG, 2/D, SUBCUTANEOUS
     Route: 058
     Dates: start: 20070301, end: 20070401
  2. BYETTA [Suspect]
     Indication: TYPE 2 DIABETES MELLITUS
     Dosage: 5 UG, 2/D, SUBCUTANEOUS : 10 UG, 2/D, SUBCUTANEOUS
     Route: 058
     Dates: start: 20070401, end: 20070501
  3. BYETTA [Suspect]
     Indication: TYPE 2 DIABETES MELLITUS
     Dosage: 5 UG, 2/D, SUBCUTANEOUS : 10 UG, 2/D, SUBCUTANEOUS
     Route: 058
     Dates: start: 20080204
  4. GLIPIZIDE XL (GLIPIZIDE) [Concomitant]
  5. METFORMIN HCL [Concomitant]
  6. FUROSEMIDE (FUROSEMIDE) [Concomitant]
  7. PLAVIX [Concomitant]
  8. LIPITOR [Concomitant]
  9. DIOVAN (HYDROCHLOROTHIAZIDE, VALSARTAN) [Concomitant]
  10. FELODIPINE [Concomitant]

REACTIONS (4)
  - ABDOMINAL DISTENSION [None]
  - DYSPEPSIA [None]
  - FEELING JITTERY [None]
  - NERVOUSNESS [None]
